FAERS Safety Report 7418900-7 (Version None)
Quarter: 2011Q2

REPORT INFORMATION
  Report Type: 
  Country: None (occurrence: None)
  Receive Date: 20110415
  Receipt Date: 20110405
  Transmission Date: 20111010
  Serious: Yes (Hospitalization, Other)
  Sender: FDA-Public Use
  Company Number: US-BAYER-2011-011918

PATIENT
  Age: 28 Year
  Sex: Female
  Weight: 54.875 kg

DRUGS (2)
  1. MIRENA [Suspect]
     Indication: CONTRACEPTION
     Dosage: 20 ?G, CONT
     Route: 015
     Dates: start: 20060501, end: 20110131
  2. METROGEL [Concomitant]
     Indication: VAGINAL INFECTION
     Dosage: 0.75 %, HS
     Route: 067
     Dates: start: 20110110, end: 20110114

REACTIONS (3)
  - VAGINAL HAEMORRHAGE [None]
  - DEVICE DISLOCATION [None]
  - UTERINE PERFORATION [None]
